FAERS Safety Report 24158098 (Version 4)
Quarter: 2024Q3

REPORT INFORMATION
  Report Type: Other
  Country: US (occurrence: US)
  Receive Date: 20240731
  Receipt Date: 20240815
  Transmission Date: 20241016
  Serious: No
  Sender: TRAVERE THERAPEUTICS
  Company Number: US-TRAVERE-2024TVT00617

PATIENT
  Age: 55 Year
  Sex: Male

DRUGS (3)
  1. FILSPARI [Suspect]
     Active Substance: SPARSENTAN
     Indication: IgA nephropathy
     Dosage: NDCNUMBER:68974040030
     Route: 048
     Dates: start: 20240521, end: 20240711
  2. FILSPARI [Suspect]
     Active Substance: SPARSENTAN
     Indication: Haematuria
  3. FILSPARI [Suspect]
     Active Substance: SPARSENTAN
     Indication: Chronic kidney disease

REACTIONS (11)
  - Fatigue [Recovered/Resolved]
  - Weight increased [Recovered/Resolved]
  - Oedema peripheral [Recovered/Resolved]
  - Chills [Unknown]
  - Nasopharyngitis [Unknown]
  - Pain in extremity [None]
  - Musculoskeletal stiffness [None]
  - Paraesthesia [None]
  - Drug effect less than expected [None]
  - Oedema [Recovered/Resolved]
  - Loss of personal independence in daily activities [Recovered/Resolved]
